FAERS Safety Report 4733611-4 (Version None)
Quarter: 2005Q3

REPORT INFORMATION
  Report Type: 
  Country: None (occurrence: None)
  Receive Date: 20050729
  Receipt Date: 20050720
  Transmission Date: 20060218
  Serious: Yes (Death, Hospitalization)
  Sender: FDA-Public Use
  Company Number: 2005106309

PATIENT
  Age: 48 Year
  Sex: Female

DRUGS (4)
  1. ATORVASTATIN CALCIUM [Suspect]
     Indication: ILL-DEFINED DISORDER
     Dosage: 10 MG (10 MG, 1 IN 1D), ORAL
     Route: 048
     Dates: end: 20050315
  2. IMIPOMP (PANTOPRAZOLE) [Suspect]
     Indication: ILL-DEFINED DISORDER
     Dosage: 20 MG (20  MG, 1 IN 1 D), ORAL
     Route: 048
     Dates: end: 20050315
  3. LYTOS (CLODRONATE DISODIUM) [Suspect]
     Indication: METASTASIS
     Dosage: 1040 MG (1040 MG, 1 IN 1 D), ORAL
     Route: 048
     Dates: end: 20050315
  4. ANASTROZOLE (ANASTROZOLE) [Suspect]
     Indication: BREAST CANCER FEMALE
     Dosage: 1 MG (1 MG, 1 IN 1 D), ORAL
     Route: 048
     Dates: start: 20050115, end: 20050315

REACTIONS (7)
  - ASCITES [None]
  - BLOOD PRESSURE DECREASED [None]
  - HEPATIC ENCEPHALOPATHY [None]
  - HYPERKALAEMIA [None]
  - HYPONATRAEMIA [None]
  - METASTASES TO LIVER [None]
  - PLEURAL EFFUSION [None]
